FAERS Safety Report 24832591 (Version 1)
Quarter: 2025Q1

REPORT INFORMATION
  Report Type: Spontaneous
  Country: US (occurrence: US)
  Receive Date: 20250110
  Receipt Date: 20250110
  Transmission Date: 20250409
  Serious: No
  Sender: BAYER HEALTHCARE PHARMACEUTICALS INC.
  Company Number: US-BAYER-2025A002672

PATIENT
  Age: 96 Year
  Sex: Male

DRUGS (1)
  1. NUBEQA [Suspect]
     Active Substance: DAROLUTAMIDE

REACTIONS (4)
  - Lip swelling [None]
  - Dysphagia [None]
  - Product use complaint [None]
  - Wrong technique in product usage process [None]

NARRATIVE: CASE EVENT DATE: 20250107
